FAERS Safety Report 14076009 (Version 1)
Quarter: 2017Q4

REPORT INFORMATION
  Report Type: Other
  Country: US (occurrence: US)
  Receive Date: 20171011
  Receipt Date: 20171011
  Transmission Date: 20180321
  Serious: Yes (Death)
  Sender: FDA-Public Use
  Company Number: US-ALSI-201700337

PATIENT
  Age: 26 Year
  Sex: Male

DRUGS (4)
  1. AMOBARBITAL [Concomitant]
     Active Substance: AMOBARBITAL
  2. DIMETHYLDIAZEPAM [Concomitant]
  3. NITROUS OXIDE. [Suspect]
     Active Substance: NITROUS OXIDE
     Indication: DRUG ABUSE
     Route: 055
  4. DIAZEPAM. [Concomitant]
     Active Substance: DIAZEPAM

REACTIONS (1)
  - Drug use disorder [Fatal]
